FAERS Safety Report 15260778 (Version 1)
Quarter: 2018Q3

REPORT INFORMATION
  Report Type: Spontaneous
  Country: US (occurrence: US)
  Receive Date: 20180809
  Receipt Date: 20180809
  Transmission Date: 20181010
  Serious: Yes (Other)
  Sender: FDA-Public Use
  Company Number: US-QILU PHARMACEUTICAL CO.LTD.-QLU-000572-2018

PATIENT
  Age: 57 Year
  Sex: Male

DRUGS (3)
  1. VANCOMYCIN [Concomitant]
     Active Substance: VANCOMYCIN
     Indication: ANTIBIOTIC THERAPY
     Dosage: UNK
     Route: 065
  2. CIPROFLOXACIN. [Concomitant]
     Active Substance: CIPROFLOXACIN
     Indication: PRODUCT USED FOR UNKNOWN INDICATION
     Dosage: UNK
     Route: 065
  3. CEFEPIME HYDROCHLORIDE. [Suspect]
     Active Substance: CEFEPIME HYDROCHLORIDE
     Indication: SEPSIS
     Dosage: 2 G, TID (EVERY 8 HOURS)
     Route: 042

REACTIONS (6)
  - Unresponsive to stimuli [Recovered/Resolved]
  - Mental status changes [Recovered/Resolved]
  - Neurotoxicity [Recovered/Resolved]
  - Dyskinesia [Recovered/Resolved]
  - Eye movement disorder [Recovered/Resolved]
  - Drug level above therapeutic [Unknown]
